FAERS Safety Report 17420392 (Version 32)
Quarter: 2023Q1

REPORT INFORMATION
  Report Type: Spontaneous
  Country: GB (occurrence: None)
  Receive Date: 20200214
  Receipt Date: 20230207
  Transmission Date: 20230417
  Serious: Yes (Other)
  Sender: FDA-Public Use
  Company Number: GB-MERCK KGAA-8163675

PATIENT
  Age: 47 Year
  Sex: Female

DRUGS (6)
  1. METFORMIN [Suspect]
     Active Substance: METFORMIN HYDROCHLORIDE
     Indication: Product used for unknown indication
     Dosage: UNK, 230 DOSAGE FORM
     Route: 048
  2. METFORMIN [Suspect]
     Active Substance: METFORMIN HYDROCHLORIDE
     Indication: Product used for unknown indication
  3. DAPTOMYCIN [Suspect]
     Active Substance: DAPTOMYCIN
     Indication: Product used for unknown indication
     Dosage: POWDER FOR SOLUTION FOR INJECTION/INFUSION ?UNK (HIGH DOSE)
     Route: 041
  4. DAPTOMYCIN [Suspect]
     Active Substance: DAPTOMYCIN
     Indication: Product used for unknown indication
  5. LINEZOLID [Suspect]
     Active Substance: LINEZOLID
     Indication: Product used for unknown indication
     Dosage: UNK, DRUG DOSAGE FORM 120, SOLUTION FOR INFUSION
     Route: 041
  6. LINEZOLID [Suspect]
     Active Substance: LINEZOLID
     Indication: Product used for unknown indication
     Dosage: UNK DRUG DOSAGE FORM 230, SOLUTION FOR INFUSION
     Route: 041

REACTIONS (2)
  - Blood creatine phosphokinase increased [Recovering/Resolving]
  - Lactic acidosis [Recovered/Resolved]
